FAERS Safety Report 9166299 (Version 1)
Quarter: 2013Q1

REPORT INFORMATION
  Report Type: Spontaneous
  Country: US (occurrence: US)
  Receive Date: 20130315
  Receipt Date: 20130315
  Transmission Date: 20140127
  Serious: Yes (Other)
  Sender: FDA-Public Use
  Company Number: US-ASTRAZENECA-2013SE15575

PATIENT
  Sex: Male

DRUGS (5)
  1. NEXIUM [Suspect]
     Route: 048
  2. PRILOSEC [Suspect]
     Route: 048
  3. LIPITOR [Suspect]
     Route: 065
  4. AVODART [Suspect]
     Route: 065
  5. ACIPHEX [Suspect]
     Route: 065
     Dates: start: 1993

REACTIONS (5)
  - Prostatomegaly [Unknown]
  - Dysuria [Unknown]
  - Hypoacusis [Unknown]
  - Blood cholesterol increased [Unknown]
  - Tachycardia [Unknown]
